FAERS Safety Report 6043187-X (Version None)
Quarter: 2009Q1

REPORT INFORMATION
  Report Type: 
  Country: None (occurrence: None)
  Receive Date: 20090119
  Receipt Date: 20090106
  Transmission Date: 20090719
  Serious: Yes (Hospitalization)
  Sender: FDA-Public Use
  Company Number: US-ELI_LILLY_AND_COMPANY-US200901000742

PATIENT
  Age: 61 Year
  Sex: Female

DRUGS (12)
  1. BYETTA [Suspect]
     Indication: DIABETES MELLITUS
     Dosage: 10 UG, UNK
     Route: 058
     Dates: start: 20070101, end: 20090105
  2. PROZAC [Concomitant]
     Dates: start: 20081211
  3. CADUET [Concomitant]
     Route: 048
  4. LAMISIL [Concomitant]
     Dosage: UNK, UNK
     Route: 048
     Dates: end: 20081211
  5. ASPIRIN [Concomitant]
     Dosage: 81 MG, UNK
  6. IBUPROFEN [Concomitant]
     Dosage: 800 MG, UNK
  7. NEXIUM [Concomitant]
     Dosage: 40 MG, UNK
  8. TRIAZOLAM [Concomitant]
  9. METFORMIN [Concomitant]
     Dosage: 500 MG, 2/D
     Route: 048
  10. VICODIN [Concomitant]
  11. BENICAR [Concomitant]
  12. PAROXETINE [Concomitant]
     Dates: end: 20081211

REACTIONS (6)
  - ANAEMIA [None]
  - FATIGUE [None]
  - IRON DEFICIENCY [None]
  - LUMBAR SPINAL STENOSIS [None]
  - MYOSITIS [None]
  - PANCREATITIS ACUTE [None]
